FAERS Safety Report 15876953 (Version 1)
Quarter: 2019Q1

REPORT INFORMATION
  Report Type: Spontaneous
  Country: KR (occurrence: KR)
  Receive Date: 20190128
  Receipt Date: 20190128
  Transmission Date: 20190417
  Serious: Yes (Other)
  Sender: FDA-Public Use
  Company Number: KR-ABBVIE-19P-090-2635815-00

PATIENT
  Sex: Male

DRUGS (1)
  1. LIPIDIL SUPRA [Suspect]
     Active Substance: FENOFIBRATE
     Indication: PRODUCT USED FOR UNKNOWN INDICATION
     Dosage: DAILY DOSE, 160 MILLIGRAM, 1 TABLET, QD
     Route: 048
     Dates: start: 2017

REACTIONS (4)
  - Therapy cessation [Unknown]
  - Generalised oedema [Unknown]
  - Expired product administered [None]
  - Blood triglycerides increased [Unknown]
